FAERS Safety Report 20306421 (Version 1)
Quarter: 2022Q1

REPORT INFORMATION
  Report Type: Spontaneous
  Country: US (occurrence: US)
  Receive Date: 20220106
  Receipt Date: 20220106
  Transmission Date: 20220423
  Serious: No
  Sender: FDA-Public Use
  Company Number: US-PARI RESPIRATORY EQUIPMENT, INC.-2021PAR00051

PATIENT
  Sex: Male
  Weight: 38.095 kg

DRUGS (10)
  1. KITABIS PAK [Suspect]
     Active Substance: TOBRAMYCIN
     Indication: Cystic fibrosis
     Dosage: 5 ML, 2X/DAY (28 DAYS ON, 28 DAYS OFF)
     Dates: start: 202104
  2. HYPER-SAL 7% VIAL [Concomitant]
  3. FIBERCON [Concomitant]
     Active Substance: CALCIUM POLYCARBOPHIL
  4. MIRALAX [Concomitant]
     Active Substance: POLYETHYLENE GLYCOL 3350
  5. OMEPRAZOLE [Concomitant]
     Active Substance: OMEPRAZOLE
  6. ALBUTEROL\IPRATROPIUM [Concomitant]
     Active Substance: ALBUTEROL\IPRATROPIUM
  7. PROAIR HFA [Concomitant]
     Active Substance: ALBUTEROL SULFATE
  8. CREON 24-76-120K [Concomitant]
  9. MINERALS\VITAMINS [Concomitant]
     Active Substance: MINERALS\VITAMINS
  10. VITAMIN D3 100,000/G POWDER [Concomitant]

REACTIONS (3)
  - Depression [Unknown]
  - Nasopharyngitis [Recovering/Resolving]
  - Treatment noncompliance [Recovered/Resolved]

NARRATIVE: CASE EVENT DATE: 20210101
